FAERS Safety Report 21420402 (Version 1)
Quarter: 2022Q4

REPORT INFORMATION
  Report Type: Spontaneous
  Country: JP (occurrence: JP)
  Receive Date: 20221007
  Receipt Date: 20221007
  Transmission Date: 20230113
  Serious: Yes (Other)
  Sender: FDA-Public Use
  Company Number: JP-JNJFOC-20221002196

PATIENT
  Sex: Male

DRUGS (1)
  1. CONCERTA [Suspect]
     Active Substance: METHYLPHENIDATE HYDROCHLORIDE
     Indication: Product used for unknown indication
     Dosage: DOSE UNKNOWNIN THE MORNING
     Route: 048

REACTIONS (9)
  - Loss of consciousness [Unknown]
  - Hyperhidrosis [Unknown]
  - Tremor [Unknown]
  - Chest pain [Unknown]
  - Insomnia [Unknown]
  - Dizziness [Unknown]
  - Headache [Unknown]
  - Musculoskeletal stiffness [Unknown]
  - Muscle tightness [Unknown]
